FAERS Safety Report 7651247-2 (Version None)
Quarter: 2011Q3

REPORT INFORMATION
  Report Type: 
  Country: None (occurrence: None)
  Receive Date: 20110727
  Receipt Date: 20110712
  Transmission Date: 20111222
  Serious: Yes (Hospitalization)
  Sender: FDA-Public Use
  Company Number: 1000021240

PATIENT
  Age: 83 Year
  Sex: Female

DRUGS (16)
  1. LANTUS [Concomitant]
  2. MODOPAR (LEVODOPA, BENSERAZIDE HYDROCHLORIDE) [Suspect]
     Dosage: 500 MG (125 MG, 4  IN 1 D), ORAL
     Route: 048
     Dates: start: 20070101
  3. HUMALOG [Concomitant]
  4. MEMANTINE HYDROCHLORIDE [Suspect]
     Dosage: 5 MG (10 MG, 1 IN 2 D),
     Dates: end: 20110406
  5. MEMANTINE HYDROCHLORIDE [Suspect]
     Dates: start: 20110420
  6. IMOVANE (ZOPICLONE) [Suspect]
     Dosage: 1 DOSAGE FORM (1 DOSAGE FORMS, 1 IN 1 D), ORAL
     Route: 048
     Dates: start: 20080101, end: 20110316
  7. IMOVANE (ZOPICLONE) [Suspect]
     Dosage: 1 DOSAGE FORM (1 DOSAGE FORMS, 1 IN 1 D), ORAL
     Route: 048
     Dates: start: 20110328
  8. PANTOPRAZOLE [Concomitant]
  9. OROCAL D3 (CALCIUM CARBONATE, COLECALCIFEROL) [Concomitant]
  10. ASPIRIN [Concomitant]
  11. DIFFU K (POTASSIUM CHLORIDE) [Suspect]
     Dosage: 1 DOSAGE FORM (1 DOSAGE FORMS, 1 IN D), ORAL
     Route: 048
     Dates: start: 20070101, end: 20110325
  12. EXELON [Suspect]
     Dosage: 9.5 MG (9.5 MG, 1 IN 1 D), TRANSDERMAL
     Route: 062
     Dates: start: 20110410, end: 20110414
  13. EXELON [Suspect]
     Dosage: 9.5 MG (9.5 MG, 1 IN 1 D), TRANSDERMAL
     Route: 062
     Dates: start: 20090817, end: 20110405
  14. ATORVASTATIN CALCIUM [Concomitant]
  15. LASILIX (FUROSEMIDE) (TABLETS) [Suspect]
     Dosage: 20 MG, ORAL
     Route: 048
     Dates: start: 20080101, end: 20110316
  16. UVEDOSE (COLECALCIFEROL) [Concomitant]

REACTIONS (9)
  - VULVOVAGINAL CANDIDIASIS [None]
  - PANCREATITIS ACUTE [None]
  - URINARY RETENTION [None]
  - SOMNOLENCE [None]
  - CEREBRAL HAEMATOMA [None]
  - DEHYDRATION [None]
  - CYTOLYTIC HEPATITIS [None]
  - GENERAL PHYSICAL HEALTH DETERIORATION [None]
  - RENAL FAILURE [None]
